FAERS Safety Report 9684919 (Version 1)
Quarter: 2013Q4

REPORT INFORMATION
  Report Type: Spontaneous
  Country: US (occurrence: US)
  Receive Date: 20131113
  Receipt Date: 20131113
  Transmission Date: 20140711
  Serious: No
  Sender: FDA-Public Use
  Company Number: US-009507513-1311USA004044

PATIENT
  Sex: Female

DRUGS (1)
  1. SAPHRIS [Suspect]
     Indication: BIPOLAR I DISORDER
     Dosage: 10 MG, ONCE DAILY IN THE EVENING
     Route: 060

REACTIONS (4)
  - Crepitations [Recovered/Resolved]
  - Glossitis [Recovered/Resolved]
  - Tongue ulceration [Recovered/Resolved]
  - Inappropriate schedule of drug administration [Unknown]
